FAERS Safety Report 9207640 (Version 1)
Quarter: 2013Q1

REPORT INFORMATION
  Report Type: Spontaneous
  Country: US (occurrence: None)
  Receive Date: 20120817
  Receipt Date: 20120817
  Transmission Date: 20140127
  Serious: Yes (Other)
  Sender: FDA-Public Use
  Company Number: ADR-2011-11805

PATIENT
  Sex: Male

DRUGS (2)
  1. BACLOFEN [Suspect]
     Indication: MUSCLE SPASTICITY
     Route: 037
  2. BACLOFEN [Suspect]
     Indication: MOVEMENT DISORDER
     Route: 037

REACTIONS (3)
  - Rash [None]
  - Pain [None]
  - Muscle spasms [None]
